FAERS Safety Report 19648897 (Version 1)
Quarter: 2021Q3

REPORT INFORMATION
  Report Type: Report from Study
  Country: US (occurrence: US)
  Receive Date: 20210802
  Receipt Date: 20210802
  Transmission Date: 20211014
  Serious: Yes (Hospitalization)
  Sender: FDA-Public Use
  Company Number: US-GILEAD-2021-0542632

PATIENT
  Age: 20 Year
  Sex: Male

DRUGS (14)
  1. VITAMINS NOS [Concomitant]
     Active Substance: VITAMINS
  2. CLONAZEPAM. [Concomitant]
     Active Substance: CLONAZEPAM
  3. TRIAMCINOLONE ACETONIDE. [Concomitant]
     Active Substance: TRIAMCINOLONE ACETONIDE
  4. AMMONIUM LACTATE. [Concomitant]
     Active Substance: AMMONIUM LACTATE
  5. ZONISAMIDE. [Concomitant]
     Active Substance: ZONISAMIDE
  6. AZTREONAM LYSINE [Suspect]
     Active Substance: AZTREONAM LYSINE
     Indication: CYSTIC FIBROSIS
     Dosage: 75 MG, TID, FOR 28 DAYS ON THEN 28 DAYS OFF
     Route: 055
  7. PULMOZYME [Concomitant]
     Active Substance: DORNASE ALFA
  8. HYPERSAL [Concomitant]
     Active Substance: SODIUM CHLORIDE
  9. OXYGEN. [Concomitant]
     Active Substance: OXYGEN
  10. MILK OF MAGNESIA [Concomitant]
     Active Substance: MAGNESIUM HYDROXIDE
  11. PREVACID [Concomitant]
     Active Substance: LANSOPRAZOLE
  12. MIDAZOLAM HYDROCHLORIDE. [Concomitant]
     Active Substance: MIDAZOLAM HYDROCHLORIDE
  13. PROBIOTIC 10 [Concomitant]
     Active Substance: DIETARY SUPPLEMENT\PROBIOTICS
  14. KEPPRA [Concomitant]
     Active Substance: LEVETIRACETAM

REACTIONS (1)
  - Bronchitis [Recovered/Resolved]

NARRATIVE: CASE EVENT DATE: 20210712
